FAERS Safety Report 6812839-3 (Version None)
Quarter: 2010Q3

REPORT INFORMATION
  Report Type: 
  Country: None (occurrence: None)
  Receive Date: 20100701
  Receipt Date: 20100617
  Transmission Date: 20110219
  Serious: Yes (Other)
  Sender: FDA-Public Use
  Company Number: ES-JNJFOC-20090608321

PATIENT
  Sex: Male
  Weight: 61.4 kg

DRUGS (7)
  1. PREZISTA [Suspect]
     Indication: HIV INFECTION
     Route: 048
  2. PREZISTA [Suspect]
     Route: 048
  3. TRUVADA [Suspect]
     Indication: HIV INFECTION
     Route: 048
  4. TRUVADA [Suspect]
     Route: 048
  5. RALTEGRAVIR [Suspect]
     Indication: HIV INFECTION
     Route: 048
  6. RALTEGRAVIR [Suspect]
     Route: 048
  7. RITONAVIR [Suspect]
     Indication: HIV INFECTION
     Route: 048

REACTIONS (3)
  - EOSINOPHILIA [None]
  - HEPATITIS CHOLESTATIC [None]
  - RASH GENERALISED [None]
